FAERS Safety Report 6770828-1 (Version None)
Quarter: 2010Q2

REPORT INFORMATION
  Report Type: 
  Country: None (occurrence: None)
  Receive Date: 20100614
  Receipt Date: 20100614
  Transmission Date: 20101027
  Serious: Yes (Death, Life-Threatening, Hospitalization)
  Sender: FDA-Public Use
  Company Number: None

PATIENT
  Age: 58 Year
  Sex: Male

DRUGS (1)
  1. VANCOMYCIN [Suspect]
     Indication: SURGERY
     Dosage: 1000 MG ONCE IV
     Route: 042
     Dates: start: 20100413, end: 20100413

REACTIONS (3)
  - ANAPHYLACTIC REACTION [None]
  - ERYTHEMA [None]
  - HYPOTENSION [None]
